FAERS Safety Report 17093613 (Version 1)
Quarter: 2019Q4

REPORT INFORMATION
  Report Type: Spontaneous
  Country: US (occurrence: US)
  Receive Date: 20191129
  Receipt Date: 20191129
  Transmission Date: 20200122
  Serious: Yes (Hospitalization)
  Sender: FDA-Public Use
  Company Number: US-ASTRAZENECA-2019SF69574

PATIENT
  Age: 108 Day
  Sex: Male

DRUGS (2)
  1. SYNAGIS [Suspect]
     Active Substance: PALIVIZUMAB
     Route: 030
     Dates: start: 20191028, end: 20191031
  2. SYNAGIS [Suspect]
     Active Substance: PALIVIZUMAB
     Dosage: 50 MG/0.5 ML, 15 MG/KG MONTHLY
     Route: 030
     Dates: start: 20191028, end: 20191031

REACTIONS (1)
  - Respiratory syncytial virus infection [Unknown]

NARRATIVE: CASE EVENT DATE: 20191028
